FAERS Safety Report 8040131-0 (Version None)
Quarter: 2012Q1

REPORT INFORMATION
  Report Type: 
  Country: None (occurrence: None)
  Receive Date: 20120111
  Receipt Date: 20111227
  Transmission Date: 20120608
  Serious: No
  Sender: FDA-Public Use
  Company Number: US-AMGEN-USASP2011069063

PATIENT
  Age: 38 Year
  Sex: Male

DRUGS (2)
  1. ENBREL [Suspect]
     Indication: PSORIASIS
     Dosage: 50 MG, QWK
     Dates: start: 20020101
  2. HUMIRA [Concomitant]
     Dosage: UNK
     Dates: start: 20080101

REACTIONS (3)
  - HEPATIC ENZYME INCREASED [None]
  - PSORIASIS [None]
  - HEPATIC STEATOSIS [None]
